FAERS Safety Report 7946870-1 (Version None)
Quarter: 2011Q4

REPORT INFORMATION
  Report Type: 
  Country: None (occurrence: None)
  Receive Date: 20111129
  Receipt Date: 20111121
  Transmission Date: 20120403
  Serious: Yes (Hospitalization, Other)
  Sender: FDA-Public Use
  Company Number: US-ASTRAZENECA-2011SE01201

PATIENT
  Age: 66 Year
  Sex: Male

DRUGS (1)
  1. ZOMIG [Suspect]
     Route: 045

REACTIONS (4)
  - DRUG DOSE OMISSION [None]
  - HEADACHE [None]
  - NEOPLASM MALIGNANT [None]
  - CLUSTER HEADACHE [None]
